FAERS Safety Report 13028323 (Version 2)
Quarter: 2017Q1

REPORT INFORMATION
  Report Type: Spontaneous
  Country: US (occurrence: US)
  Receive Date: 20161214
  Receipt Date: 20170208
  Transmission Date: 20170428
  Serious: No
  Sender: FDA-Public Use
  Company Number: US-009507513-1611USA013438

PATIENT
  Age: 19 Year

DRUGS (1)
  1. ISENTRESS [Suspect]
     Active Substance: RALTEGRAVIR POTASSIUM
     Dosage: 400 MG, TWICE DAILY
     Route: 048

REACTIONS (2)
  - No adverse event [Unknown]
  - Incorrect product formulation administered [Unknown]
